FAERS Safety Report 15795007 (Version 2)
Quarter: 2019Q2

REPORT INFORMATION
  Report Type: Spontaneous
  Country: US (occurrence: US)
  Receive Date: 20190107
  Receipt Date: 20190410
  Transmission Date: 20190711
  Serious: No
  Sender: FDA-Public Use
  Company Number: US-PFIZER INC-2019008116

PATIENT
  Age: 23 Year
  Sex: Female

DRUGS (1)
  1. EUCRISA [Suspect]
     Active Substance: CRISABOROLE
     Indication: ECZEMA
     Dosage: UNK, 1X/DAY(APPLY TO FACE HS)
     Route: 061
     Dates: start: 20181204, end: 20181211

REACTIONS (4)
  - Application site erythema [Recovered/Resolved]
  - Application site pain [Recovered/Resolved]
  - Hypersensitivity [Unknown]
  - Application site pruritus [Unknown]

NARRATIVE: CASE EVENT DATE: 20181211
